FAERS Safety Report 17820717 (Version 3)
Quarter: 2020Q3

REPORT INFORMATION
  Report Type: Report from Study
  Country: GB (occurrence: GB)
  Receive Date: 20200525
  Receipt Date: 20200724
  Transmission Date: 20201102
  Serious: Yes (Hospitalization, Other)
  Sender: FDA-Public Use
  Company Number: NVSC2020GB056295

PATIENT
  Age: 59 Year
  Sex: Female

DRUGS (2)
  1. CO?AMOXICLAV [Concomitant]
     Active Substance: AMOXICILLIN\CLAVULANATE POTASSIUM
     Indication: LOWER RESPIRATORY TRACT INFECTION
     Dosage: 625 MG, TID
     Route: 065
     Dates: start: 20191221, end: 20191227
  2. GILENYA [Suspect]
     Active Substance: FINGOLIMOD HYDROCHLORIDE
     Indication: RELAPSING-REMITTING MULTIPLE SCLEROSIS
     Dosage: 0.5 MG, QD
     Route: 048
     Dates: start: 20141127

REACTIONS (13)
  - Arthralgia [Unknown]
  - Muscular weakness [Unknown]
  - Back pain [Unknown]
  - Pain in extremity [Unknown]
  - Fall [Unknown]
  - Urinary incontinence [Recovered/Resolved]
  - Headache [Unknown]
  - Dizziness [Unknown]
  - Gait disturbance [Unknown]
  - Osteoarthritis [Not Recovered/Not Resolved]
  - Micturition urgency [Recovered/Resolved]
  - Dysstasia [Unknown]
  - Productive cough [Unknown]

NARRATIVE: CASE EVENT DATE: 20191216
